FAERS Safety Report 4490048-3 (Version None)
Quarter: 2004Q4

REPORT INFORMATION
  Report Type: 
  Country: None (occurrence: None)
  Receive Date: 20041027
  Receipt Date: 20041012
  Transmission Date: 20050328
  Serious: Yes (Death)
  Sender: FDA-Public Use
  Company Number: 2004-BP-09749RO

PATIENT
  Age: 62 Year
  Sex: Male

DRUGS (12)
  1. DEXAMETHASONE [Suspect]
     Indication: MULTIPLE MYELOMA
     Dosage: 40 MG/DAY/CYCLE, PO
     Route: 048
     Dates: start: 20030112, end: 20030702
  2. GENASENSE [Suspect]
     Indication: MULTIPLE MYELOMA
     Dosage: 7 MG/KG/DAY/CYCLE, IV
     Route: 042
     Dates: start: 20030112, end: 20030718
  3. GLYBURIDE [Concomitant]
  4. INSULIN [Concomitant]
  5. PIOGLITAZONE HCL [Concomitant]
  6. VALSARTAN (VALSARTAN) [Concomitant]
  7. NIFEDIPINE [Concomitant]
  8. GEMFIBROZIL [Concomitant]
  9. CELECOXIB (CELECOXIB) [Concomitant]
  10. MULTIVITAMIN [Concomitant]
  11. TRIMETHOPRIM W/SULFAMETHOXAZOLE (BACTRIM) [Concomitant]
  12. RANITIDINE [Concomitant]

REACTIONS (13)
  - ARRHYTHMIA [None]
  - CARDIAC DISORDER [None]
  - CARDIOMEGALY [None]
  - CORONARY ARTERY ATHEROSCLEROSIS [None]
  - DEHYDRATION [None]
  - DYSTROPHIC CALCIFICATION [None]
  - GLOMERULONEPHRITIS FOCAL [None]
  - HYPERGLYCAEMIA [None]
  - LIGHT CHAIN DISEASE [None]
  - MYOCARDIAL CALCIFICATION [None]
  - MYOCARDIAL FIBROSIS [None]
  - MYOCARDIAL ISCHAEMIA [None]
  - VASCULAR CALCIFICATION [None]
